FAERS Safety Report 18982397 (Version 3)
Quarter: 2021Q2

REPORT INFORMATION
  Report Type: Report from Study
  Country: US (occurrence: US)
  Receive Date: 20210308
  Receipt Date: 20210412
  Transmission Date: 20210717
  Serious: Yes (Other)
  Sender: FDA-Public Use
  Company Number: NVSC2021US051773

PATIENT
  Sex: Female

DRUGS (1)
  1. PROMACTA [Suspect]
     Active Substance: ELTROMBOPAG OLAMINE
     Indication: IMMUNE THROMBOCYTOPENIA
     Dosage: 75 MG, QD
     Route: 065
     Dates: start: 20170109

REACTIONS (9)
  - Gastrointestinal stromal tumour [Unknown]
  - Condition aggravated [Unknown]
  - Platelet count decreased [Unknown]
  - Amnesia [Unknown]
  - Depressed mood [Unknown]
  - Expired product administered [Unknown]
  - Anxiety [Unknown]
  - Stress [Unknown]
  - Feeling abnormal [Unknown]
